FAERS Safety Report 11981793 (Version 2)
Quarter: 2016Q1

REPORT INFORMATION
  Report Type: Spontaneous
  Country: FI (occurrence: FI)
  Receive Date: 20160201
  Receipt Date: 20160202
  Transmission Date: 20160526
  Serious: Yes (Other)
  Sender: FDA-Public Use
  Company Number: FI-ROCHE-1702599

PATIENT
  Age: 23 Year
  Sex: Female

DRUGS (3)
  1. PANADOL FORTE [Concomitant]
     Active Substance: ACETAMINOPHEN\CAFFEINE
     Indication: INFLUENZA
     Dosage: 1 TABLET 1-3 TIMES A DAY
     Route: 048
     Dates: start: 20160123
  2. BURANA [Concomitant]
     Active Substance: IBUPROFEN
     Indication: INFLUENZA
     Dosage: 1 TABLET 1-3 TIMES A DAY
     Route: 048
     Dates: start: 20160123
  3. TAMIFLU [Suspect]
     Active Substance: OSELTAMIVIR PHOSPHATE
     Indication: INFLUENZA
     Route: 048
     Dates: start: 20160123, end: 20160125

REACTIONS (1)
  - Confusional state [Recovered/Resolved]

NARRATIVE: CASE EVENT DATE: 20160126
